FAERS Safety Report 23080910 (Version 1)
Quarter: 2023Q4

REPORT INFORMATION
  Report Type: Spontaneous
  Country: US (occurrence: US)
  Receive Date: 20231018
  Receipt Date: 20231018
  Transmission Date: 20240110
  Serious: Yes (Other)
  Sender: FDA-Public Use
  Company Number: US-BRISTOL-MYERS SQUIBB COMPANY-2023-148683

PATIENT
  Age: 26 Year
  Sex: Female
  Weight: 90.72 kg

DRUGS (9)
  1. THALOMID [Suspect]
     Active Substance: THALIDOMIDE
     Indication: Crohn^s disease
     Dosage: DOSE : UNAVAILABLE;     FREQ : UNAVAILABLE
     Route: 048
     Dates: start: 2001, end: 2003
  2. THALOMID [Suspect]
     Active Substance: THALIDOMIDE
     Indication: Blood disorder
  3. THALOMID [Suspect]
     Active Substance: THALIDOMIDE
     Indication: Liver disorder
  4. PROPRANOLOL [Concomitant]
     Active Substance: PROPRANOLOL HYDROCHLORIDE
     Indication: Product used for unknown indication
  5. LACTULOSE [Concomitant]
     Active Substance: LACTULOSE
     Indication: Product used for unknown indication
  6. PREVACID [Concomitant]
     Active Substance: LANSOPRAZOLE
     Indication: Product used for unknown indication
  7. FAMOTIDINE [Concomitant]
     Active Substance: FAMOTIDINE
     Indication: Product used for unknown indication
  8. ADVAIR HFA [Concomitant]
     Active Substance: FLUTICASONE PROPIONATE\SALMETEROL XINAFOATE
     Indication: Product used for unknown indication
  9. ATIVAN [Concomitant]
     Active Substance: LORAZEPAM
     Indication: Product used for unknown indication

REACTIONS (1)
  - Neuropathy peripheral [Unknown]

NARRATIVE: CASE EVENT DATE: 20030101
